FAERS Safety Report 13271675 (Version 3)
Quarter: 2017Q1

REPORT INFORMATION
  Report Type: Spontaneous
  Country: FR (occurrence: FR)
  Receive Date: 20170227
  Receipt Date: 20170327
  Transmission Date: 20170428
  Serious: Yes (Death, Hospitalization)
  Sender: FDA-Public Use
  Company Number: FR-ROCHE-1897618

PATIENT
  Age: 66 Year
  Sex: Female

DRUGS (4)
  1. ROACTEMRA [Suspect]
     Active Substance: TOCILIZUMAB
     Indication: TEMPORAL ARTERITIS
  2. ROACTEMRA [Suspect]
     Active Substance: TOCILIZUMAB
     Indication: RHEUMATIC DISORDER
  3. NATISPRAY [Concomitant]
     Active Substance: NITROGLYCERIN
  4. ROACTEMRA [Suspect]
     Active Substance: TOCILIZUMAB
     Indication: ARTHRALGIA
     Route: 041
     Dates: start: 20170120, end: 20170120

REACTIONS (5)
  - Product use issue [Fatal]
  - N-terminal prohormone brain natriuretic peptide increased [Fatal]
  - Off label use [Fatal]
  - Acute coronary syndrome [Fatal]
  - Troponin T increased [Fatal]

NARRATIVE: CASE EVENT DATE: 20170121
